FAERS Safety Report 14627596 (Version 1)
Quarter: 2018Q1

REPORT INFORMATION
  Report Type: Spontaneous
  Country: IT (occurrence: IT)
  Receive Date: 20180312
  Receipt Date: 20180312
  Transmission Date: 20180509
  Serious: Yes (Death, Life-Threatening)
  Sender: FDA-Public Use
  Company Number: IT-SHIRE-IT201807416

PATIENT

DRUGS (4)
  1. MELPHALAN. [Suspect]
     Active Substance: MELPHALAN
     Indication: CONGENITAL MYOPATHY
     Route: 065
  2. PREDNISONE. [Suspect]
     Active Substance: PREDNISONE
     Indication: CONGENITAL MYOPATHY
     Dosage: 0.5 MG/KG, 1X/DAY:QD
     Route: 042
  3. HUMAN NORMAL IMMUNOGLOBULIN [Suspect]
     Active Substance: HUMAN IMMUNOGLOBULIN G
     Indication: CONGENITAL MYOPATHY
     Dosage: 2000 MG, 1X/DAY:QD
     Route: 042
  4. BORTEZOMIB [Suspect]
     Active Substance: BORTEZOMIB
     Indication: CONGENITAL MYOPATHY
     Route: 065

REACTIONS (2)
  - Drug ineffective for unapproved indication [Fatal]
  - Respiratory disorder [Fatal]
